FAERS Safety Report 9236413 (Version 1)
Quarter: 2013Q2

REPORT INFORMATION
  Report Type: Spontaneous
  Country: DE (occurrence: DE)
  Receive Date: 20130417
  Receipt Date: 20130417
  Transmission Date: 20140414
  Serious: Yes (Death)
  Sender: FDA-Public Use
  Company Number: GXKR2013DE001522

PATIENT
  Age: 91 Year
  Sex: Female

DRUGS (18)
  1. CIPROFLOXACIN [Suspect]
     Dosage: 500 MG/DAY
     Route: 048
     Dates: start: 20120914, end: 20120922
  2. TRUXAL [Interacting]
     Dosage: 40-90 MG/D
     Route: 048
     Dates: start: 20120915, end: 20120921
  3. TRUXAL [Interacting]
     Dosage: 60 MG/DAY
     Dates: start: 20120922
  4. TAVOR [Interacting]
     Dosage: 3 MG/DAY
     Route: 048
     Dates: start: 20120914, end: 20120919
  5. TAVOR [Interacting]
     Dosage: 2 MG/DAY
     Route: 048
     Dates: start: 20120920, end: 20120922
  6. ZYPREXA [Interacting]
     Dosage: 5 MG/DAY
     Route: 048
     Dates: start: 20120917, end: 20120920
  7. ZYPREXA [Interacting]
     Dosage: 10 MG/DAY
     Route: 048
     Dates: start: 20120921, end: 20120922
  8. RAMIPRIL [Concomitant]
     Dosage: 2.5 MG/DAY
     Route: 048
     Dates: end: 20120922
  9. BISOPROLOL [Concomitant]
     Dosage: 2.5 MG/DAY
     Route: 048
     Dates: end: 20120913
  10. BISOPROLOL [Concomitant]
     Dosage: 5 MG/DAY
     Route: 048
     Dates: start: 20120914, end: 20120922
  11. ALLOPURINOL [Concomitant]
     Dosage: 150 MG/DAY
     Route: 048
     Dates: end: 20120922
  12. OMEPRAZOLE [Concomitant]
     Dosage: 20 MG/DAY
     Dates: end: 20120911
  13. PANTOPRAZOL [Concomitant]
     Dosage: 20 MG/DAY
     Route: 048
     Dates: start: 20120912, end: 20120922
  14. METAMIZOLE [Concomitant]
     Dosage: 1500 MG/DAY
     Route: 048
     Dates: end: 20120922
  15. ACETYLSALICYLIC ACID [Concomitant]
     Dosage: 100 MG/DAY
     Route: 048
     Dates: end: 20120922
  16. INSULIN [Concomitant]
     Dosage: 18 IU/DAY
     Route: 058
     Dates: end: 20120922
  17. FUROSEMIDE [Concomitant]
     Dosage: 80 MG, QD
     Route: 048
     Dates: end: 20120911
  18. FUROSEMIDE [Concomitant]
     Dosage: 120 UNK, UNK
     Route: 048
     Dates: start: 20120912, end: 20120922

REACTIONS (1)
  - Death [Fatal]
